FAERS Safety Report 6163576-2 (Version None)
Quarter: 2009Q2

REPORT INFORMATION
  Report Type: 
  Country: None (occurrence: None)
  Receive Date: 20090422
  Receipt Date: 20021106
  Transmission Date: 20091009
  Serious: No
  Sender: FDA-Public Use
  Company Number: US-SOLVAY-00202002853

PATIENT
  Age: 14954 Day
  Sex: Female
  Weight: 63.503 kg

DRUGS (2)
  1. ANDROGEL [Suspect]
     Indication: ACCIDENTAL EXPOSURE
     Dosage: DAILY DOSE: 5 G.
     Route: 062
     Dates: start: 20021101, end: 20021106
  2. ANDROGEL [Suspect]
     Dosage: DAILY DOSE: 2.5 G.
     Route: 062
     Dates: start: 20021106

REACTIONS (6)
  - ASTHENIA [None]
  - CHEST DISCOMFORT [None]
  - DYSGEUSIA [None]
  - DYSPNOEA [None]
  - HEADACHE [None]
  - TACHYCARDIA [None]
